FAERS Safety Report 10446023 (Version 1)
Quarter: 2014Q3

REPORT INFORMATION
  Report Type: Spontaneous
  Country: US (occurrence: US)
  Receive Date: 20140910
  Receipt Date: 20140910
  Transmission Date: 20150326
  Serious: Yes (Hospitalization)
  Sender: FDA-Public Use
  Company Number: US-B.I. PHARMACEUTICALS,INC./RIDGEFIELD-2014-BI-42165BP

PATIENT
  Age: 65 Year
  Sex: Male
  Weight: 97.1 kg

DRUGS (1)
  1. PRADAXA [Suspect]
     Active Substance: DABIGATRAN ETEXILATE MESYLATE
     Indication: ATRIAL FIBRILLATION
     Route: 065
     Dates: end: 20120329

REACTIONS (7)
  - Ecchymosis [Unknown]
  - Presyncope [Recovered/Resolved]
  - Coagulopathy [Unknown]
  - Fall [Recovered/Resolved]
  - Syncope [Recovered/Resolved]
  - Cerebral haemorrhage [Not Recovered/Not Resolved]
  - Presyncope [Recovered/Resolved]

NARRATIVE: CASE EVENT DATE: 20120323
